FAERS Safety Report 9095258 (Version 3)
Quarter: 2013Q1

REPORT INFORMATION
  Report Type: Spontaneous
  Country: JP (occurrence: None)
  Receive Date: 20130124
  Receipt Date: 20130305
  Transmission Date: 20140127
  Serious: Yes (Hospitalization)
  Sender: FDA-Public Use
  Company Number: AE-SPE-2013-001

PATIENT
  Age: 32 Year
  Sex: Male

DRUGS (5)
  1. MEIACT MS [Suspect]
     Indication: WOUND INFECTION
     Dosage: 300 MG/DAY, PO
     Route: 048
     Dates: start: 20120301, end: 20120304
  2. MEIACT MS [Suspect]
     Dosage: 300 MG/DAY, PO
     Route: 048
     Dates: start: 20120301, end: 20120304
  3. LOXOPROFEN SODIUM HYDRATE [Concomitant]
     Dates: start: 20120301, end: 20120302
  4. TRANILAST [Concomitant]
     Route: 048
     Dates: start: 20120324, end: 20120327
  5. TRAILAST [Concomitant]

REACTIONS (2)
  - Drug-induced liver injury [None]
  - Pruritus genital [None]
